FAERS Safety Report 8241925-9 (Version None)
Quarter: 2012Q1

REPORT INFORMATION
  Report Type: 
  Country: None (occurrence: None)
  Receive Date: 20120329
  Receipt Date: 20120320
  Transmission Date: 20120608
  Serious: Yes (Other)
  Sender: FDA-Public Use
  Company Number: DE-BRISTOL-MYERS SQUIBB COMPANY-16464315

PATIENT
  Sex: Female

DRUGS (2)
  1. REYATAZ [Suspect]
  2. ABACAVIR SULFATE/LAMIVUDINE [Suspect]

REACTIONS (1)
  - RENAL INJURY [None]
